FAERS Safety Report 8389288-2 (Version None)
Quarter: 2012Q2

REPORT INFORMATION
  Report Type: 
  Country: None (occurrence: None)
  Receive Date: 20120528
  Receipt Date: 20120517
  Transmission Date: 20120825
  Serious: Yes (Hospitalization, Other)
  Sender: FDA-Public Use
  Company Number: US-BRISTOL-MYERS SQUIBB COMPANY-16562365

PATIENT
  Age: 71 Year
  Sex: Male
  Weight: 94 kg

DRUGS (2)
  1. IPILIMUMAB [Suspect]
     Indication: MALIGNANT MELANOMA
     Dosage: LAST DOSE: 20MAR2012. COURSES:14. 10MG/KG OVER 90 MIN ON DAY1 ,1Q12 WEEKS(MAINTENANCE)
     Route: 042
     Dates: start: 20110802
  2. LEUKINE [Suspect]
     Indication: MALIGNANT MELANOMA
     Dosage: LAST DOSE ON 07NOV2011
     Route: 058
     Dates: start: 20110802

REACTIONS (3)
  - CHOLECYSTITIS [None]
  - SYNCOPE [None]
  - ADRENAL INSUFFICIENCY [None]
